FAERS Safety Report 7498336-3 (Version None)
Quarter: 2011Q2

REPORT INFORMATION
  Report Type: 
  Country: None (occurrence: None)
  Receive Date: 20110524
  Receipt Date: 20110412
  Transmission Date: 20111010
  Serious: Yes (Hospitalization, Disabling)
  Sender: FDA-Public Use
  Company Number: US-BAYER-201037624NA

PATIENT
  Age: 43 Year
  Sex: Female
  Weight: 63.492 kg

DRUGS (6)
  1. YASMIN [Suspect]
     Indication: ACNE
     Dosage: UNK
     Dates: start: 20000101, end: 20030101
  2. YASMIN [Suspect]
     Indication: PREMENSTRUAL SYNDROME
  3. YASMIN [Suspect]
     Indication: DYSMENORRHOEA
  4. IBUPROFEN [Concomitant]
  5. XANAX [Concomitant]
  6. ALLEGRA [Concomitant]

REACTIONS (2)
  - PULMONARY THROMBOSIS [None]
  - PAIN [None]
